FAERS Safety Report 5466549-8 (Version None)
Quarter: 2007Q3

REPORT INFORMATION
  Report Type: 
  Country: None (occurrence: None)
  Receive Date: 20070820
  Receipt Date: 20070611
  Transmission Date: 20080115
  Serious: No
  Sender: FDA-Public Use
  Company Number: WAES 0706USA01945

PATIENT
  Age: 69 Year
  Sex: Female

DRUGS (8)
  1. JANUVIA [Suspect]
     Indication: DIABETES MELLITUS
     Dosage: 100 MG DAILY PO
     Route: 048
     Dates: start: 20070424
  2. ACTOS [Concomitant]
  3. FOSAMAX [Suspect]
  4. LIPITOR [Concomitant]
  5. CALCIUM [Concomitant]
  6. GLYBURIDE [Concomitant]
  7. METFORMIN [Concomitant]
  8. VITAMINS [Concomitant]

REACTIONS (1)
  - HAEMATEMESIS [None]
